FAERS Safety Report 14769155 (Version 1)
Quarter: 2018Q2

REPORT INFORMATION
  Report Type: Spontaneous
  Country: US (occurrence: US)
  Receive Date: 20180417
  Receipt Date: 20180417
  Transmission Date: 20180711
  Serious: Yes (Other)
  Sender: FDA-Public Use
  Company Number: US-UPSHER-SMITH LABORATORIES, LLC-2018USL00146

PATIENT
  Sex: Male
  Weight: 63.49 kg

DRUGS (12)
  1. TAMSULOSIN [Concomitant]
     Active Substance: TAMSULOSIN
  2. PRAVASTATIN. [Concomitant]
     Active Substance: PRAVASTATIN
  3. METOPROLOL. [Concomitant]
     Active Substance: METOPROLOL
  4. VALIUM [Concomitant]
     Active Substance: DIAZEPAM
     Dosage: UNK, AS NEEDED
  5. ELIQUIS [Concomitant]
     Active Substance: APIXABAN
  6. ASMANEX [Concomitant]
     Active Substance: MOMETASONE FUROATE
  7. PACERONE [Suspect]
     Active Substance: AMIODARONE HYDROCHLORIDE
     Indication: HEART RATE IRREGULAR
     Dosage: 200 MG, 1X/DAY
     Route: 048
     Dates: start: 2016, end: 2018
  8. PACERONE [Suspect]
     Active Substance: AMIODARONE HYDROCHLORIDE
     Dosage: 200 MG, 3X/WEEK
     Route: 048
     Dates: start: 2018
  9. QNASL [Suspect]
     Active Substance: BECLOMETHASONE DIPROPIONATE
     Route: 045
  10. CETIRIZINE [Concomitant]
     Active Substance: CETIRIZINE HYDROCHLORIDE
     Dosage: UNK, AS NEEDED
  11. DARIFENACIN. [Concomitant]
     Active Substance: DARIFENACIN
  12. SINGULAIR [Concomitant]
     Active Substance: MONTELUKAST SODIUM

REACTIONS (7)
  - Sleep apnoea syndrome [Not Recovered/Not Resolved]
  - Dyspnoea [Not Recovered/Not Resolved]
  - Ageusia [Not Recovered/Not Resolved]
  - Anosmia [Not Recovered/Not Resolved]
  - Alopecia [Not Recovered/Not Resolved]
  - Insomnia [Not Recovered/Not Resolved]
  - Swelling [Unknown]
